FAERS Safety Report 5410842-1 (Version None)
Quarter: 2007Q3

REPORT INFORMATION
  Report Type: 
  Country: None (occurrence: None)
  Receive Date: 20070810
  Receipt Date: 20070731
  Transmission Date: 20080115
  Serious: Yes (Hospitalization)
  Sender: FDA-Public Use
  Company Number: US-JNJFOC-20070800458

PATIENT
  Sex: Female
  Weight: 89.81 kg

DRUGS (10)
  1. DURAGESIC-100 [Suspect]
     Indication: PAIN
     Dosage: 100 AND 25 UG/HR
     Route: 062
  2. PEGASYS [Suspect]
     Indication: HEPATITIS C
     Route: 065
  3. RETROVIR [Suspect]
     Indication: HEPATITIS C
     Route: 065
  4. PHENERGAN HCL [Suspect]
     Indication: VOMITING
     Route: 030
  5. PHENERGAN HCL [Suspect]
     Indication: NAUSEA
     Route: 030
  6. HUMULIN 70/30 [Concomitant]
     Indication: DIABETES MELLITUS
     Route: 058
  7. LANTUS [Concomitant]
     Indication: DIABETES MELLITUS
     Route: 058
  8. PREDNISONE TAB [Concomitant]
     Indication: ASTHMA
     Dosage: 10 MG - 40 MG
     Route: 048
  9. REGLAN [Concomitant]
     Indication: VOMITING
     Route: 048
  10. REGLAN [Concomitant]
     Indication: NAUSEA
     Route: 048

REACTIONS (9)
  - DIABETES MELLITUS INADEQUATE CONTROL [None]
  - EATING DISORDER [None]
  - HALLUCINATION [None]
  - HEPATITIS C [None]
  - MEMORY IMPAIRMENT [None]
  - MENTAL IMPAIRMENT [None]
  - NAUSEA [None]
  - THYROID DISORDER [None]
  - VOMITING [None]
